FAERS Safety Report 9805751 (Version 1)
Quarter: 2014Q1

REPORT INFORMATION
  Report Type: Spontaneous
  Country: US (occurrence: US)
  Receive Date: 20140109
  Receipt Date: 20140109
  Transmission Date: 20141002
  Serious: Yes (Death)
  Sender: FDA-Public Use
  Company Number: US-PFIZER INC-2014004854

PATIENT
  Age: 41 Year
  Sex: Female

DRUGS (6)
  1. OXYCODONE HYDROCHLORIDE [Suspect]
  2. FENTANYL [Suspect]
  3. DIAZEPAM [Suspect]
  4. CARISOPRODOL [Suspect]
  5. CLONAZEPAM [Suspect]
  6. DOXYLAMINE [Suspect]
     Dosage: UNK

REACTIONS (1)
  - Drug abuse [Fatal]
